FAERS Safety Report 25706141 (Version 1)
Quarter: 2025Q3

REPORT INFORMATION
  Report Type: Spontaneous
  Country: US (occurrence: US)
  Receive Date: 20250820
  Receipt Date: 20250820
  Transmission Date: 20251020
  Serious: Yes (Hospitalization, Other)
  Sender: NOVO NORDISK
  Company Number: US-NOVOPROD-1503100

PATIENT
  Age: 64 Year
  Sex: Female

DRUGS (2)
  1. OZEMPIC [Suspect]
     Active Substance: SEMAGLUTIDE
     Indication: Mixed connective tissue disease
  2. OZEMPIC [Suspect]
     Active Substance: SEMAGLUTIDE
     Indication: Large intestinal stenosis
     Dosage: 0.5 MG, QW
     Dates: start: 20240611, end: 202507

REACTIONS (5)
  - Illness [Not Recovered/Not Resolved]
  - Dehydration [Recovered/Resolved]
  - Vomiting [Recovered/Resolved]
  - Tendonitis [Unknown]
  - Product use in unapproved indication [Not Recovered/Not Resolved]

NARRATIVE: CASE EVENT DATE: 20240611
